FAERS Safety Report 9621585 (Version 1)
Quarter: 2013Q4

REPORT INFORMATION
  Report Type: Spontaneous
  Country: US (occurrence: US)
  Receive Date: 20131015
  Receipt Date: 20131015
  Transmission Date: 20140711
  Serious: No
  Sender: FDA-Public Use
  Company Number: US-PFIZER INC-2013295040

PATIENT
  Age: 57 Year
  Sex: Female
  Weight: 136 kg

DRUGS (4)
  1. SKELAXIN [Suspect]
     Indication: MUSCLE SPASMS
     Dosage: 800 MG, 3X/DAY
  2. SKELAXIN [Suspect]
     Indication: NEUROPATHY PERIPHERAL
  3. PROTONIX [Suspect]
     Indication: GASTROOESOPHAGEAL REFLUX DISEASE
     Dosage: 40 MG, DAILY
     Dates: start: 2011, end: 2013
  4. NEURONTIN [Concomitant]
     Indication: FIBROMYALGIA
     Dosage: 800 MG, 3X/DAY

REACTIONS (3)
  - Abdominal discomfort [Unknown]
  - Dyspepsia [Unknown]
  - Hyperchlorhydria [Unknown]
